FAERS Safety Report 13848276 (Version 1)
Quarter: 2017Q3

REPORT INFORMATION
  Report Type: Spontaneous
  Country: US (occurrence: US)
  Receive Date: 20170808
  Receipt Date: 20170808
  Transmission Date: 20171127
  Serious: Yes (Life-Threatening, Disabling)
  Sender: FDA-Public Use
  Company Number: None

PATIENT
  Sex: Female
  Weight: 56.3 kg

DRUGS (8)
  1. PARAGARD T 380A [Suspect]
     Active Substance: COPPER
  2. B VITAMINS [Concomitant]
     Active Substance: CYANOCOBALAMIN\DEXPANTHENOL\NIACINAMIDE\PYRIDOXINE HYDROCHLORIDE\RIBOFLAVIN 5^-PHOSPHATE SODIUM\THIAMINE HYDROCHLORIDE\VITAMIN B COMPLEX
  3. GLUTATHIONE [Concomitant]
     Active Substance: GLUTATHIONE
  4. LIVER SUPPORT [Concomitant]
  5. 5HTP [Concomitant]
  6. VITAMIN D [Concomitant]
     Active Substance: CHOLECALCIFEROL
  7. MAGNESIUM [Concomitant]
     Active Substance: MAGNESIUM
  8. BRAIN ANTI INFLAMMATORIES [Concomitant]

REACTIONS (9)
  - Muscle disorder [None]
  - Headache [None]
  - Amenorrhoea [None]
  - Acne [None]
  - Hypersensitivity [None]
  - Nervous system disorder [None]
  - Hormone level abnormal [None]
  - Metal poisoning [None]
  - Dyspepsia [None]

NARRATIVE: CASE EVENT DATE: 20170323
